FAERS Safety Report 5757907-2 (Version None)
Quarter: 2008Q2

REPORT INFORMATION
  Report Type: 
  Country: None (occurrence: None)
  Receive Date: 20080603
  Receipt Date: 20080603
  Transmission Date: 20081010
  Serious: No
  Sender: FDA-Public Use
  Company Number: None

PATIENT

DRUGS (2)
  1. LOVENOX [Suspect]
     Dosage: 30MG/0.3ML SC
     Route: 058
  2. LOVENOX [Suspect]
     Dosage: 100MG/1ML SC
     Route: 058

REACTIONS (1)
  - PHARMACEUTICAL PRODUCT COMPLAINT [None]
